FAERS Safety Report 7934092-X (Version None)
Quarter: 2011Q4

REPORT INFORMATION
  Report Type: 
  Country: None (occurrence: None)
  Receive Date: 20111122
  Receipt Date: 20110427
  Transmission Date: 20120403
  Serious: No
  Sender: FDA-Public Use
  Company Number: US-BAYER-2011-037286

PATIENT
  Age: 78 Year
  Sex: Male

DRUGS (5)
  1. MULTIVITAMIN PREPARATION + MINERAL SUPPLEMENT [Concomitant]
  2. LEVITRA [Suspect]
     Indication: ERECTILE DYSFUNCTION
     Dosage: 20 MG, QD
     Route: 048
     Dates: start: 20110412
  3. FISH OIL [Concomitant]
  4. EYE DROPS [Concomitant]
  5. ASPIRIN [Concomitant]

REACTIONS (2)
  - LACRIMATION INCREASED [None]
  - EYE IRRITATION [None]
